FAERS Safety Report 8843797 (Version 1)
Quarter: 2012Q4

REPORT INFORMATION
  Report Type: 
  Country: CN (occurrence: CN)
  Receive Date: 20121016
  Receipt Date: 20121016
  Transmission Date: 20130627
  Serious: Yes (Hospitalization)
  Sender: FDA-Public Use
  Company Number: CN-MERCK-1210CHN004145

PATIENT
  Age: 63 Year
  Sex: Male

DRUGS (4)
  1. PROSCAR [Suspect]
     Indication: POLLAKIURIA
     Dosage: 5 mg, qd
     Route: 048
     Dates: start: 20120915
  2. PROSCAR [Suspect]
     Indication: MICTURITION URGENCY
  3. PROSCAR [Suspect]
     Indication: MICTURITION DISORDER
  4. PROSCAR [Suspect]
     Indication: ABDOMINAL DISTENSION

REACTIONS (5)
  - Micturition disorder [Not Recovered/Not Resolved]
  - Micturition urgency [Not Recovered/Not Resolved]
  - Pollakiuria [Not Recovered/Not Resolved]
  - Abdominal distension [Recovering/Resolving]
  - Off label use [Unknown]
